FAERS Safety Report 9493578 (Version 3)
Quarter: 2014Q2

REPORT INFORMATION
  Report Type: Spontaneous
  Country: US (occurrence: US)
  Receive Date: 20130902
  Receipt Date: 20140410
  Transmission Date: 20141212
  Serious: No
  Sender: FDA-Public Use
  Company Number: US-PFIZER INC-2013080548

PATIENT
  Sex: Female

DRUGS (2)
  1. CELEBREX [Suspect]
     Dosage: 100 MG, 2X/DAY
  2. CELEBREX [Suspect]
     Dosage: 200 MG, 2X/DAY

REACTIONS (2)
  - Arthralgia [Unknown]
  - Nerve injury [Unknown]
